FAERS Safety Report 22019213 (Version 2)
Quarter: 2023Q1

REPORT INFORMATION
  Report Type: Report from Study
  Country: US (occurrence: None)
  Receive Date: 20230222
  Receipt Date: 20230327
  Transmission Date: 20230417
  Serious: Yes (Death)
  Sender: FDA-Public Use
  Company Number: US-Merck Healthcare KGaA-9385345

PATIENT
  Age: 70 Year
  Sex: Female
  Weight: 58 kg

DRUGS (1)
  1. REBIF [Suspect]
     Active Substance: INTERFERON BETA-1A
     Indication: Multiple sclerosis
     Dosage: REBIF: REBIF PREFILLED SYRINGE
     Route: 058
     Dates: start: 20210322

REACTIONS (1)
  - Death [Fatal]
